FAERS Safety Report 11309420 (Version 2)
Quarter: 2015Q3

REPORT INFORMATION
  Report Type: Spontaneous
  Country: CA (occurrence: CA)
  Receive Date: 20150724
  Receipt Date: 20150825
  Transmission Date: 20151125
  Serious: Yes (Other)
  Sender: FDA-Public Use
  Company Number: CA-TEVA-580945ACC

PATIENT
  Age: 6 Year
  Sex: Male

DRUGS (3)
  1. ALVESCO [Concomitant]
     Active Substance: CICLESONIDE
     Route: 065
  2. NOVO-SALBUTAMOL HFA [Suspect]
     Active Substance: ALBUTEROL
     Indication: ASTHMA
     Dosage: 800 MICROGRAM DAILY;
     Route: 055
  3. DALACIN C FLAVOURED GRANULES [Concomitant]
     Route: 065

REACTIONS (4)
  - Dyspnoea [Not Recovered/Not Resolved]
  - Agitation [Not Recovered/Not Resolved]
  - Nightmare [Not Recovered/Not Resolved]
  - Somnambulism [Not Recovered/Not Resolved]
